FAERS Safety Report 21833783 (Version 1)
Quarter: 2023Q1

REPORT INFORMATION
  Report Type: Spontaneous
  Country: FR (occurrence: FR)
  Receive Date: 20230108
  Receipt Date: 20230108
  Transmission Date: 20230418
  Serious: Yes (Other)
  Sender: FDA-Public Use
  Company Number: FR-AFSSAPS-BR20222810

PATIENT
  Age: 74 Year
  Sex: Male
  Weight: 73 kg

DRUGS (8)
  1. FUROSEMIDE [Suspect]
     Active Substance: FUROSEMIDE
     Indication: Oedema due to cardiac disease
     Dosage: 40 MILLIGRAM, ONCE A DAY
     Route: 048
  2. METFORMIN [Suspect]
     Active Substance: METFORMIN HYDROCHLORIDE
     Indication: Diabetes mellitus
     Dosage: 1000 MILLIGRAM, TWO TIMES A DAY
     Route: 048
  3. CRESTOR [Suspect]
     Active Substance: ROSUVASTATIN CALCIUM
     Indication: Hypercholesterolaemia
     Dosage: 1 DOSAGE FORM, ONCE A DAY
     Route: 048
  4. ELIQUIS [Suspect]
     Active Substance: APIXABAN
     Indication: Thrombosis prophylaxis
     Dosage: 1 DOSAGE FORM, TWO TIMES A DAY(5MG MATIN ET SOIR)(5MG MORNING AND EVENING)
     Route: 048
  5. DAPAGLIFLOZIN [Suspect]
     Active Substance: DAPAGLIFLOZIN
     Indication: Diabetes mellitus
     Dosage: 1 DOSAGE FORM, ONCE A DAY
     Route: 048
  6. ISENTRESS [Suspect]
     Active Substance: RALTEGRAVIR POTASSIUM
     Indication: HIV infection
     Dosage: 1 DOSAGE FORM, TWO TIMES A DAY (400MG MATIN ET SOIR)(400MG MORNING AND EVENING)
     Route: 048
     Dates: start: 20220920
  7. KARDEGIC [Suspect]
     Active Substance: ASPIRIN DL-LYSINE
     Indication: Peripheral arterial occlusive disease
     Dosage: 1 DOSAGE FORM, ONCE A DAY
     Route: 048
  8. TRUVADA [Suspect]
     Active Substance: EMTRICITABINE\TENOFOVIR DISOPROXIL FUMARATE
     Indication: HIV infection
     Dosage: 1 DOSAGE FORM, ONCE A DAY (200/245MG LE MATIN)(200/245MG IN THE MORNING)
     Route: 048
     Dates: start: 20220920

REACTIONS (1)
  - Thrombocytopenia [Not Recovered/Not Resolved]

NARRATIVE: CASE EVENT DATE: 20221206
